FAERS Safety Report 4578540-4 (Version None)
Quarter: 2005Q1

REPORT INFORMATION
  Report Type: 
  Country: None (occurrence: None)
  Receive Date: 20050204
  Receipt Date: 20050204
  Transmission Date: 20050727
  Serious: No
  Sender: FDA-Public Use
  Company Number: None

PATIENT
  Sex: Female
  Weight: 92.56 kg

DRUGS (8)
  1. ROCEPHIN [Suspect]
     Indication: ACUTE ENDOCARDITIS
     Dosage: 2GM   EVERY 24 HOURS   INTRAVENOU
     Route: 042
     Dates: start: 20050101, end: 20050203
  2. ROCEPHIN [Suspect]
     Dosage: 2GM   EVERY 24 HOURS   INTRAVENOU
     Route: 042
     Dates: start: 20050101, end: 20050203
  3. DEMADEX [Concomitant]
  4. POTASSIUM CHLORIDE [Concomitant]
  5. HUMULIN 70/30 [Concomitant]
  6. TENORETIC 50/50 [Concomitant]
  7. ASPIRIN [Concomitant]
  8. SYNTHROID [Concomitant]

REACTIONS (1)
  - RASH [None]
